FAERS Safety Report 8157299-8 (Version None)
Quarter: 2012Q1

REPORT INFORMATION
  Report Type: 
  Country: None (occurrence: None)
  Receive Date: 20120222
  Receipt Date: 20120207
  Transmission Date: 20120608
  Serious: Yes (Other)
  Sender: FDA-Public Use
  Company Number: US-ROCHE-1042001

PATIENT

DRUGS (6)
  1. HERCEPTIN [Suspect]
     Dosage: WEEKS 2-10
  2. DOXORUBICIN HYDROCHLORIDE [Suspect]
     Indication: BREAST CANCER
     Dosage: ON DAY 1 BEGINNING CYCLE 5, EVERY 3 WEEKS TIMES FOUR
     Route: 042
  3. PACLITAXEL [Suspect]
     Indication: BREAST CANCER
     Dosage: ON DAY 1, EVERY 21 DAYS TIMES FOUR
     Route: 042
     Dates: start: 20000105
  4. CYCLOPHOSPHAMIDE [Suspect]
     Indication: BREAST CANCER
     Dosage: ON DAY 1 BGINNING CYCLE 5, EVERY 3 WEEKS TIMES FOUR
     Route: 042
  5. HERCEPTIN [Suspect]
     Indication: BREAST CANCER
     Dosage: LOADING DOSE; ON WEEK 1
     Route: 042
     Dates: start: 20000105
  6. DOLASETRON MESYLATE [Suspect]
     Indication: PRODUCT USED FOR UNKNOWN INDICATION

REACTIONS (1)
  - WEIGHT INCREASED [None]
